FAERS Safety Report 7578028-2 (Version None)
Quarter: 2011Q2

REPORT INFORMATION
  Report Type: 
  Country: None (occurrence: None)
  Receive Date: 20110628
  Receipt Date: 20110616
  Transmission Date: 20111010
  Serious: Yes (Hospitalization)
  Sender: FDA-Public Use
  Company Number: US-ELI_LILLY_AND_COMPANY-US201106005594

PATIENT
  Sex: Male
  Weight: 85.261 kg

DRUGS (5)
  1. OLANZAPINE [Suspect]
     Dosage: UNK
     Route: 030
     Dates: start: 20110616
  2. OLANZAPINE [Suspect]
     Dosage: UNK
     Route: 030
     Dates: start: 20110518
  3. OLANZAPINE [Suspect]
     Indication: SCHIZOPHRENIA
     Dosage: UNK
     Route: 030
     Dates: start: 20110420
  4. OLANZAPINE [Suspect]
     Dosage: UNK
     Route: 030
     Dates: start: 20110602
  5. OLANZAPINE [Suspect]
     Dosage: UNK
     Route: 030
     Dates: start: 20110504

REACTIONS (11)
  - ATAXIA [None]
  - CONFUSIONAL STATE [None]
  - RESTLESS LEGS SYNDROME [None]
  - DIZZINESS [None]
  - DYSARTHRIA [None]
  - BALANCE DISORDER [None]
  - MOVEMENT DISORDER [None]
  - ANXIETY [None]
  - AGITATION [None]
  - HYPERTENSION [None]
  - TACHYCARDIA [None]
